FAERS Safety Report 5011671-3 (Version None)
Quarter: 2006Q2

REPORT INFORMATION
  Report Type: 
  Country: None (occurrence: None)
  Receive Date: 20060526
  Receipt Date: 20050715
  Transmission Date: 20061013
  Serious: Yes (Hospitalization)
  Sender: FDA-Public Use
  Company Number: PHHO2005GB20301

PATIENT
  Age: 20 Year
  Sex: Female

DRUGS (5)
  1. SYNTOCINON [Suspect]
     Indication: LABOUR INDUCTION
     Dosage: 10 IU
     Route: 042
     Dates: start: 20050709, end: 20050710
  2. PROSTINE [Concomitant]
     Indication: LABOUR INDUCTION
     Dosage: 3 MG, ONCE/SINGLE
     Route: 067
     Dates: start: 20050707, end: 20050707
  3. PROSTINE [Concomitant]
     Dosage: 3 MG, ONCE/SINGLE
     Route: 067
     Dates: start: 20050707, end: 20050707
  4. PROSTAGLANDINS [Concomitant]
     Dosage: UNK, ONCE/SINGLE
     Route: 067
     Dates: start: 20050708, end: 20050708
  5. PROSTAGLANDINS [Concomitant]
     Dosage: UNK, ONCE/SINGLE
     Route: 067
     Dates: start: 20050709, end: 20050709

REACTIONS (4)
  - ARTIFICIAL RUPTURE OF MEMBRANES [None]
  - CAESAREAN SECTION [None]
  - DRUG EXPOSURE DURING PREGNANCY [None]
  - PROLONGED LABOUR [None]
